FAERS Safety Report 11352639 (Version 1)
Quarter: 2015Q3

REPORT INFORMATION
  Report Type: Spontaneous
  Country: US (occurrence: US)
  Receive Date: 20150807
  Receipt Date: 20150807
  Transmission Date: 20151125
  Serious: No
  Sender: FDA-Public Use
  Company Number: US-JNJFOC-20150118070

PATIENT
  Age: 78 Year
  Sex: Female
  Weight: 56.7 kg

DRUGS (4)
  1. GLUCOSAMINE WITH CHRONDROITIN [Concomitant]
     Indication: ARTHROPATHY
     Dosage: INTERVAL: 20 YEARS
     Route: 065
  2. WOMENS ROGAINE [Suspect]
     Active Substance: MINOXIDIL
     Route: 061
  3. ONE A DAY MULTIVITAMIN [Concomitant]
     Indication: ROUTINE HEALTH MAINTENANCE
     Dosage: INTERVAL: 20 YEARS
     Route: 065
  4. WOMENS ROGAINE [Suspect]
     Active Substance: MINOXIDIL
     Indication: HAIR GROWTH ABNORMAL
     Dosage: TWICE A DAY AS DIRECTED
     Route: 061

REACTIONS (2)
  - Pruritus [Not Recovered/Not Resolved]
  - Middle insomnia [Unknown]
